FAERS Safety Report 8793519 (Version 1)
Quarter: 2012Q4

REPORT INFORMATION
  Report Type: 
  Country: JP (occurrence: JP)
  Receive Date: 20120917
  Receipt Date: 20120917
  Transmission Date: 20130627
  Serious: Yes (Hospitalization)
  Sender: FDA-Public Use
  Company Number: JP-B.I. PHARMACEUTICALS,INC./RIDGEFIELD-2012-BP-22578NB

PATIENT
  Age: 75 Year
  Sex: Male

DRUGS (1)
  1. MIRAPEX ER [Suspect]
     Route: 048

REACTIONS (1)
  - Femoral neck fracture [Unknown]
